FAERS Safety Report 4510256-2 (Version None)
Quarter: 2004Q4

REPORT INFORMATION
  Report Type: 
  Country: None (occurrence: None)
  Receive Date: 20041124
  Receipt Date: 20041005
  Transmission Date: 20050328
  Serious: Yes (Hospitalization)
  Sender: FDA-Public Use
  Company Number: US-MERCK-0410USA00671

PATIENT
  Age: 71 Year
  Sex: Female

DRUGS (5)
  1. VIOXX [Suspect]
     Indication: ROTATOR CUFF SYNDROME
     Route: 048
     Dates: start: 20000101, end: 20040101
  2. NORVASC [Concomitant]
     Route: 065
  3. ZOLOFT [Concomitant]
     Route: 065
     Dates: start: 20040101
  4. CITRACAL [Concomitant]
     Route: 065
  5. FOSAMAX [Concomitant]
     Route: 065
     Dates: end: 20040901

REACTIONS (6)
  - ASTHENIA [None]
  - DIZZINESS [None]
  - DYSPNOEA [None]
  - FALL [None]
  - FATIGUE [None]
  - THROAT TIGHTNESS [None]
